FAERS Safety Report 7810021-4 (Version None)
Quarter: 2011Q4

REPORT INFORMATION
  Report Type: 
  Country: None (occurrence: None)
  Receive Date: 20111012
  Receipt Date: 20110622
  Transmission Date: 20120403
  Serious: No
  Sender: FDA-Public Use
  Company Number: US-GLAXOSMITHKLINE-A0932462A

PATIENT
  Age: 80 Year
  Sex: Male

DRUGS (2)
  1. METFORMIN HYDROCHLORIDE [Concomitant]
  2. JALYN [Suspect]
     Indication: PROSTATITIS
     Dosage: .5MG PER DAY
     Route: 048
     Dates: start: 20010501

REACTIONS (1)
  - BLOOD GLUCOSE INCREASED [None]
